FAERS Safety Report 9345626 (Version 6)
Quarter: 2015Q1

REPORT INFORMATION
  Report Type: Spontaneous
  Country: DK (occurrence: DK)
  Receive Date: 20130613
  Receipt Date: 20150312
  Transmission Date: 20150721
  Serious: Yes (Other)
  Sender: FDA-Public Use
  Company Number: DK-TEVA-411095ISR

PATIENT
  Age: 32 Year
  Sex: Female
  Weight: 65 kg

DRUGS (1)
  1. METHOTREXATE [Suspect]
     Active Substance: METHOTREXATE
     Indication: PSORIASIS
     Dosage: 8 TABLETS ONCE WEEKLY
     Dates: start: 20080605, end: 20090401

REACTIONS (5)
  - Eye pain [Unknown]
  - Optic neuritis [Not Recovered/Not Resolved]
  - Cough [Not Recovered/Not Resolved]
  - Blindness [Unknown]
  - Pneumonitis [Not Recovered/Not Resolved]

NARRATIVE: CASE EVENT DATE: 20080828
